FAERS Safety Report 4534194-4 (Version None)
Quarter: 2004Q4

REPORT INFORMATION
  Report Type: 
  Country: None (occurrence: None)
  Receive Date: 20041221
  Receipt Date: 20041221
  Transmission Date: 20050328
  Serious: Yes (Hospitalization)
  Sender: FDA-Public Use
  Company Number: None

PATIENT
  Age: 80 Year
  Sex: Male
  Weight: 74.3899 kg

DRUGS (7)
  1. GATIFLOXACIN [Suspect]
     Dosage: 200 MG   ONCE DAILY   ORAL
     Route: 048
     Dates: start: 20041205, end: 20041213
  2. GLYBURIDE [Concomitant]
  3. ROSIGLITAZONE MALEATE [Concomitant]
  4. CLONIDINE [Concomitant]
  5. METOPROLOL [Concomitant]
  6. OMEPRAZOLE [Concomitant]
  7. SIMVASTATIN [Concomitant]

REACTIONS (1)
  - BLOOD GLUCOSE DECREASED [None]
